FAERS Safety Report 5828748-2 (Version None)
Quarter: 2008Q3

REPORT INFORMATION
  Report Type: 
  Country: None (occurrence: None)
  Receive Date: 20080729
  Receipt Date: 20080729
  Transmission Date: 20090109
  Serious: Yes (Hospitalization)
  Sender: FDA-Public Use
  Company Number: None

PATIENT
  Age: 44 Year
  Sex: Female
  Weight: 60.782 kg

DRUGS (1)
  1. LYRICA [Suspect]
     Indication: DIABETIC NEUROPATHY
     Dosage: 50MG DAILY PO
     Route: 048
     Dates: start: 20071115, end: 20080215

REACTIONS (6)
  - CHROMATOPSIA [None]
  - HALLUCINATIONS, MIXED [None]
  - HEAD DISCOMFORT [None]
  - NAUSEA [None]
  - PHOTOPHOBIA [None]
  - TUNNEL VISION [None]
